FAERS Safety Report 8102436-4 (Version None)
Quarter: 2012Q1

REPORT INFORMATION
  Report Type: 
  Country: None (occurrence: None)
  Receive Date: 20120131
  Receipt Date: 20120131
  Transmission Date: 20120608
  Serious: Yes (Other)
  Sender: FDA-Public Use
  Company Number: None

PATIENT
  Sex: Male

DRUGS (1)
  1. HUMIRA [Suspect]
     Indication: RHEUMATOID ARTHRITIS
     Dosage: HUMIRA 40MG QO WEEK SQ
     Route: 058
     Dates: start: 20100506, end: 20111130

REACTIONS (1)
  - UPPER RESPIRATORY TRACT INFECTION [None]
